FAERS Safety Report 19701337 (Version 1)
Quarter: 2021Q3

REPORT INFORMATION
  Report Type: Spontaneous
  Country: US (occurrence: US)
  Receive Date: 20210813
  Receipt Date: 20210813
  Transmission Date: 20211014
  Serious: Yes (Hospitalization, Other)
  Sender: FDA-Public Use
  Company Number: US-ALLERGAN-2128005US

PATIENT
  Sex: Female

DRUGS (16)
  1. LIPITOR [Concomitant]
     Active Substance: ATORVASTATIN CALCIUM
     Indication: BLOOD CHOLESTEROL INCREASED
     Dosage: 40 MG, QHS
     Route: 048
     Dates: start: 2020
  2. KEPPRA [Concomitant]
     Active Substance: LEVETIRACETAM
     Indication: SEIZURE
     Dosage: 500 MG, BID
     Route: 048
  3. PRILOSEC [Concomitant]
     Active Substance: OMEPRAZOLE MAGNESIUM
     Indication: DIVERTICULUM
  4. XANAX [Concomitant]
     Active Substance: ALPRAZOLAM
     Indication: ANXIETY
     Dosage: 5 MG, BID
     Route: 048
     Dates: start: 2011
  5. LISINOPRIL HCTZ [Concomitant]
     Active Substance: HYDROCHLOROTHIAZIDE\LISINOPRIL
     Indication: HYPERTENSION
     Dosage: 20?12.5 MG TWICE DAILY
     Route: 048
  6. ARICEPT [Concomitant]
     Active Substance: DONEPEZIL HYDROCHLORIDE
     Indication: AMNESIA
     Dosage: 5 MG, QHS
     Route: 048
     Dates: start: 2019
  7. PRILOSEC [Concomitant]
     Active Substance: OMEPRAZOLE MAGNESIUM
     Indication: REGURGITATION
     Dosage: 40 MG, QD
     Route: 048
     Dates: start: 202010
  8. NEURONTIN [Concomitant]
     Active Substance: GABAPENTIN
     Indication: INTERVERTEBRAL DISC PROTRUSION
  9. BYSTOLIC [Suspect]
     Active Substance: NEBIVOLOL HYDROCHLORIDE
     Indication: HYPERTENSION
     Dosage: 20 MG, QD
     Route: 048
  10. NEURONTIN [Concomitant]
     Active Substance: GABAPENTIN
     Indication: SCIATICA
     Dosage: 20 MG, TID
     Route: 048
     Dates: start: 2018
  11. COLACE [Concomitant]
     Active Substance: DOCUSATE SODIUM
     Indication: DIVERTICULUM
     Dosage: 300 MG, QHS
     Route: 048
  12. LASIX + K [Concomitant]
     Active Substance: FUROSEMIDE\POTASSIUM CHLORIDE
     Dosage: 40 MG, QD
     Route: 048
  13. ASPIRIN (E.C.) [Concomitant]
     Active Substance: ASPIRIN
     Indication: ISCHAEMIC HEART DISEASE PROPHYLAXIS
     Dosage: 81 MG, QD
     Route: 048
  14. POTASSIUM [Concomitant]
     Active Substance: POTASSIUM
     Indication: PROPHYLAXIS
     Dosage: 20 MG, QD
     Route: 048
  15. ALLOPURINOL. [Concomitant]
     Active Substance: ALLOPURINOL
     Indication: PROPHYLAXIS
     Dosage: 100 MG, QD
     Route: 048
  16. NEURONTIN [Concomitant]
     Active Substance: GABAPENTIN
     Indication: INTERVERTEBRAL DISC DEGENERATION

REACTIONS (9)
  - Basilar artery aneurysm [Not Recovered/Not Resolved]
  - Thyroidectomy [Unknown]
  - Regurgitation [Unknown]
  - Glomerular filtration rate decreased [Unknown]
  - Eyelid ptosis [Not Recovered/Not Resolved]
  - Optic nerve neoplasm [Unknown]
  - Blood cholesterol increased [Unknown]
  - Visual field defect [Not Recovered/Not Resolved]
  - Mass excision [Unknown]

NARRATIVE: CASE EVENT DATE: 2020
